FAERS Safety Report 8511271-4 (Version None)
Quarter: 2012Q3

REPORT INFORMATION
  Report Type: 
  Country: None (occurrence: None)
  Receive Date: 20120716
  Receipt Date: 20120709
  Transmission Date: 20120928
  Serious: Yes (Other)
  Sender: FDA-Public Use
  Company Number: US-SANOFI-AVENTIS-2010SA078355

PATIENT
  Age: 65 Year
  Sex: Female
  Weight: 63.18 kg

DRUGS (26)
  1. MULTAQ [Suspect]
     Indication: ATRIAL FIBRILLATION
     Route: 048
     Dates: start: 20101125
  2. MULTAQ [Suspect]
     Route: 048
     Dates: start: 20101125
  3. MULTAQ [Suspect]
     Route: 048
     Dates: start: 20101125
  4. ASPIRIN [Concomitant]
     Route: 048
  5. ACTONEL [Concomitant]
     Dosage: TOOK FOR 2 TO 3 YRS
     Route: 065
     Dates: end: 20110101
  6. ALPRAZOLAM [Concomitant]
  7. MULTAQ [Suspect]
     Route: 048
     Dates: start: 20101125
  8. ALPRAZOLAM [Concomitant]
     Indication: ANXIETY
  9. MULTAQ [Suspect]
     Route: 048
     Dates: start: 20101125
  10. FISH OIL [Concomitant]
  11. MULTAQ [Suspect]
     Route: 048
     Dates: start: 20101125
  12. ALPRAZOLAM [Concomitant]
  13. CALTRATE +D [Concomitant]
  14. MULTAQ [Suspect]
     Indication: ATRIAL FLUTTER
     Route: 048
     Dates: start: 20101125
  15. MULTAQ [Suspect]
     Route: 048
     Dates: start: 20101125
  16. MULTAQ [Suspect]
     Route: 048
     Dates: start: 20101125
  17. MULTAQ [Suspect]
     Route: 048
     Dates: start: 20101125
  18. CENTRUM [Concomitant]
  19. MULTAQ [Suspect]
     Route: 048
     Dates: start: 20101125
  20. ATORVASTATIN [Concomitant]
  21. XANAX [Concomitant]
     Indication: ANXIETY
  22. MULTAQ [Suspect]
     Route: 048
     Dates: start: 20101125
  23. MULTAQ [Suspect]
     Route: 048
     Dates: start: 20101125
  24. MULTAQ [Suspect]
     Route: 048
     Dates: start: 20101125
  25. ASPIRIN [Concomitant]
     Dosage: 1/2 A TABLET OF 325 MG
     Route: 048
     Dates: start: 20110101
  26. ROSUVASTATIN [Concomitant]
     Dates: start: 20110101

REACTIONS (20)
  - NIGHTMARE [None]
  - TOOTH INFECTION [None]
  - VISUAL IMPAIRMENT [None]
  - ATRIAL FIBRILLATION [None]
  - WHEEZING [None]
  - NERVOUSNESS [None]
  - GENERALISED ANXIETY DISORDER [None]
  - EYE PAIN [None]
  - BLEPHAROSPASM [None]
  - PRODUCT QUALITY ISSUE [None]
  - ANGLE CLOSURE GLAUCOMA [None]
  - TENSION HEADACHE [None]
  - SKIN EXFOLIATION [None]
  - HEART RATE DECREASED [None]
  - BLOOD GLUCOSE INCREASED [None]
  - PULMONARY FUNCTION TEST ABNORMAL [None]
  - DEPRESSION [None]
  - HEART RATE INCREASED [None]
  - CIRCADIAN RHYTHM SLEEP DISORDER [None]
  - RASH ERYTHEMATOUS [None]
